FAERS Safety Report 15373423 (Version 6)
Quarter: 2018Q4

REPORT INFORMATION
  Report Type: Report from Study
  Country: None (occurrence: ES)
  Receive Date: 20180912
  Receipt Date: 20181017
  Transmission Date: 20190204
  Serious: Yes (Hospitalization)
  Sender: FDA-Public Use
  Company Number: ES-ABBVIE-18S-144-2481408-00

PATIENT
  Age: 61 Year
  Sex: Male
  Weight: 50 kg

DRUGS (1)
  1. DUODOPA [Suspect]
     Active Substance: CARBIDOPA\LEVODOPA
     Indication: PARKINSON^S DISEASE
     Route: 050
     Dates: start: 20091202

REACTIONS (5)
  - Decubitus ulcer [Recovering/Resolving]
  - Discomfort [Recovering/Resolving]
  - Gastrointestinal stoma complication [Recovering/Resolving]
  - Dysphagia [Recovering/Resolving]
  - Pneumonia [Recovering/Resolving]

NARRATIVE: CASE EVENT DATE: 2018
